FAERS Safety Report 18076593 (Version 3)
Quarter: 2020Q4

REPORT INFORMATION
  Report Type: Report from Study
  Country: US (occurrence: US)
  Receive Date: 20200727
  Receipt Date: 20201006
  Transmission Date: 20210113
  Serious: No
  Sender: FDA-Public Use
  Company Number: US-BAYER-2020-134484

PATIENT
  Age: 68 Year
  Sex: Male
  Weight: 68.03 kg

DRUGS (18)
  1. HYDRALAZINE [Concomitant]
     Active Substance: HYDRALAZINE HYDROCHLORIDE
  2. LONSURF [Concomitant]
     Active Substance: TIPIRACIL HYDROCHLORIDE\TRIFLURIDINE
     Dosage: 60 MG, BID
     Dates: start: 20200804
  3. LONSURF [Concomitant]
     Active Substance: TIPIRACIL HYDROCHLORIDE\TRIFLURIDINE
     Dosage: 50 MG, BID
  4. STIVARGA [Suspect]
     Active Substance: REGORAFENIB
     Indication: COLON CANCER
     Dosage: 160 MG DAILY DOSE FOR 21 DAYS
     Route: 048
     Dates: start: 20200618, end: 20200706
  5. DRONABINOL. [Concomitant]
     Active Substance: DRONABINOL
  6. ATENOLOL. [Concomitant]
     Active Substance: ATENOLOL
  7. GAS-X [Concomitant]
     Active Substance: DIMETHICONE
  8. OXYCODONE [Concomitant]
     Active Substance: OXYCODONE
  9. TRAMADOL. [Concomitant]
     Active Substance: TRAMADOL
  10. MAGNESIUM OXIDE. [Concomitant]
     Active Substance: MAGNESIUM OXIDE
  11. TYLENOL [Concomitant]
     Active Substance: ACETAMINOPHEN
  12. ELIQUIS [Concomitant]
     Active Substance: APIXABAN
  13. AMILORIDE [Concomitant]
     Active Substance: AMILORIDE
  14. LOPERAMIDE [Concomitant]
     Active Substance: LOPERAMIDE
  15. METRONIDAZOLE. [Concomitant]
     Active Substance: METRONIDAZOLE
  16. LORAZEPAM. [Concomitant]
     Active Substance: LORAZEPAM
  17. ONDANSETRON [Concomitant]
     Active Substance: ONDANSETRON
  18. PROCHLORPERAZINE MALEATE. [Concomitant]
     Active Substance: PROCHLORPERAZINE MALEATE

REACTIONS (7)
  - Haemoglobin abnormal [Not Recovered/Not Resolved]
  - Back pain [None]
  - Blood pressure increased [Recovering/Resolving]
  - Oral mucosal blistering [None]
  - White blood cell count decreased [None]
  - Dysphonia [Recovered/Resolved]
  - Blood bilirubin increased [None]
